FAERS Safety Report 5162357-6 (Version None)
Quarter: 2006Q4

REPORT INFORMATION
  Report Type: 
  Country: None (occurrence: None)
  Receive Date: 20061130
  Receipt Date: 20061026
  Transmission Date: 20070319
  Serious: Yes (Congenital Anomaly, Other)
  Sender: FDA-Public Use
  Company Number: PHNU2006DE03562

PATIENT
  Age: 31 Year
  Sex: Female

DRUGS (6)
  1. SANDIMMUNE [Suspect]
     Indication: GLOMERULONEPHRITIS
     Dosage: 100 MG DAILY
     Route: 048
     Dates: start: 20051205, end: 20060329
  2. SANDIMMUNE [Suspect]
     Dosage: 50 MG DAILY
     Route: 048
     Dates: start: 20060330, end: 20060412
  3. SANDIMMUNE [Suspect]
     Dosage: 20 MG DAILY
     Route: 048
     Dates: start: 20060413, end: 20060419
  4. DECORTIN [Concomitant]
  5. FOLIC ACID [Concomitant]
     Indication: PROPHYLAXIS
     Dosage: 5 MG DAILY
     Route: 048
     Dates: start: 20050223
  6. LEVOTHYROXINE SODIUM [Concomitant]
     Indication: HYPOTHYROIDISM
     Dosage: 100 MG DAILY
     Route: 048
     Dates: start: 20050223

REACTIONS (6)
  - ABORTION INDUCED [None]
  - CONGENITAL ANOMALY [None]
  - DRUG EXPOSURE DURING PREGNANCY [None]
  - ENCEPHALOCELE [None]
  - PTERYGIUM COLLI [None]
  - SPINE MALFORMATION [None]
